FAERS Safety Report 11280913 (Version 1)
Quarter: 2015Q3

REPORT INFORMATION
  Report Type: Spontaneous
  Country: US (occurrence: US)
  Receive Date: 20150717
  Receipt Date: 20150717
  Transmission Date: 20151125
  Serious: Yes (Other)
  Sender: FDA-Public Use
  Company Number: US-JNJFOC-20150603745

PATIENT
  Sex: Male

DRUGS (1)
  1. XARELTO [Suspect]
     Active Substance: RIVAROXABAN
     Indication: PRODUCT USED FOR UNKNOWN INDICATION
     Route: 048
     Dates: start: 2014

REACTIONS (6)
  - Post procedural haemorrhage [Unknown]
  - Wound haemorrhage [Recovered/Resolved]
  - Prostatic specific antigen increased [Recovered/Resolved]
  - Miliaria [Unknown]
  - Insomnia [Unknown]
  - Ocular hyperaemia [Not Recovered/Not Resolved]
